FAERS Safety Report 4897745-6 (Version None)
Quarter: 2005Q4

REPORT INFORMATION
  Report Type: 
  Country: None (occurrence: None)
  Receive Date: 20051223
  Receipt Date: 20050908
  Transmission Date: 20060501
  Serious: No
  Sender: FDA-Public Use
  Company Number: 05P-163-0310508-00

PATIENT
  Age: 54 Year
  Sex: Female
  Weight: 71.6683 kg

DRUGS (9)
  1. HUMIRA [Suspect]
     Indication: RHEUMATOID ARTHRITIS
     Dosage: 40 MG, 1 IN 2 WK, SUBCUTANEOUS
     Route: 058
     Dates: start: 20050908
  2. MEDROL [Concomitant]
  3. PREDNISONE [Concomitant]
  4. DIOVAN HCT [Concomitant]
  5. DARVOCET [Concomitant]
  6. FISH OIL [Concomitant]
  7. VIACTIV [Concomitant]
  8. ZEITIA [Concomitant]
  9. CELECOXIB [Concomitant]

REACTIONS (1)
  - INJECTION SITE IRRITATION [None]
